FAERS Safety Report 9453967 (Version 1)
Quarter: 2013Q3

REPORT INFORMATION
  Report Type: Spontaneous
  Country: US (occurrence: US)
  Receive Date: 20130812
  Receipt Date: 20130812
  Transmission Date: 20140515
  Serious: Yes (Other)
  Sender: FDA-Public Use
  Company Number: US-THROMBOGENICS NV-JET-2013-155

PATIENT
  Sex: 0

DRUGS (9)
  1. JETREA [Suspect]
     Indication: MACULAR HOLE
     Dosage: 0.125 MG, ONE TIME DOSE
     Route: 031
     Dates: start: 20130403, end: 20130403
  2. JETREA [Suspect]
     Indication: VITREOUS ADHESIONS
  3. METOPROLOL [Concomitant]
     Indication: HYPERTENSION
     Dosage: 75 MG, AM/PM
     Route: 065
  4. FUROSEMIDE [Concomitant]
     Indication: HYPERTENSION
     Dosage: 10 MG, QD
     Route: 065
  5. FUROSEMIDE [Concomitant]
     Indication: FLUID RETENTION
  6. ASPIRIN [Concomitant]
     Indication: PRODUCT USED FOR UNKNOWN INDICATION
     Dosage: 1/2 OF 325MG TABLET DAILY
     Route: 065
  7. DILTIAZEM CD [Concomitant]
     Indication: ARRHYTHMIA
     Dosage: 180 MG, QD
     Route: 065
  8. MULTIVITAMIN                       /00097801/ [Concomitant]
     Indication: PRODUCT USED FOR UNKNOWN INDICATION
     Dosage: UNK, QD
  9. B12-VITAMIIN [Concomitant]
     Indication: PRODUCT USED FOR UNKNOWN INDICATION
     Dosage: UNK, QD

REACTIONS (4)
  - Macular hole [Not Recovered/Not Resolved]
  - Visual acuity reduced [Not Recovered/Not Resolved]
  - Visual impairment [Not Recovered/Not Resolved]
  - Visual impairment [Not Recovered/Not Resolved]
